FAERS Safety Report 12860432 (Version 3)
Quarter: 2016Q4

REPORT INFORMATION
  Report Type: Report from Study
  Country: US (occurrence: US)
  Receive Date: 20161019
  Receipt Date: 20161203
  Transmission Date: 20170207
  Serious: Yes (Other)
  Sender: FDA-Public Use
  Company Number: PHEH2016US026815

PATIENT
  Sex: Female

DRUGS (1)
  1. ENTRESTO [Suspect]
     Active Substance: SACUBITRIL\VALSARTAN
     Indication: CARDIAC FAILURE CONGESTIVE
     Dosage: 50 MG, BID (AM / PM)
     Route: 065

REACTIONS (7)
  - Urinary retention [Unknown]
  - Fatigue [Unknown]
  - Metastases to rectum [Unknown]
  - Pain in extremity [Unknown]
  - Malaise [Unknown]
  - Fibromyalgia [Unknown]
  - Salivary hypersecretion [Unknown]
